FAERS Safety Report 4582646-3 (Version None)
Quarter: 2005Q1

REPORT INFORMATION
  Report Type: 
  Country: None (occurrence: None)
  Receive Date: 20050215
  Receipt Date: 20050207
  Transmission Date: 20050727
  Serious: Yes (Other)
  Sender: FDA-Public Use
  Company Number: PHBS2005JP02111

PATIENT
  Age: 83 Year
  Sex: Female

DRUGS (3)
  1. DIOVAN [Suspect]
     Indication: HYPERTENSION
     Dosage: 40 MG, QD
     Route: 048
     Dates: start: 20050108, end: 20050125
  2. ZYLORIC [Suspect]
     Dosage: 40 MG, QD
     Route: 048
     Dates: end: 20050125
  3. ZANTAC [Concomitant]
     Route: 048
     Dates: end: 20050125

REACTIONS (8)
  - MUCOSAL EROSION [None]
  - ORAL DISCOMFORT [None]
  - PETECHIAE [None]
  - PRURITUS GENERALISED [None]
  - PYREXIA [None]
  - RENAL FAILURE [None]
  - TOXIC SKIN ERUPTION [None]
  - URTICARIA [None]
